FAERS Safety Report 14833663 (Version 1)
Quarter: 2018Q2

REPORT INFORMATION
  Report Type: Spontaneous
  Country: US (occurrence: US)
  Receive Date: 20180501
  Receipt Date: 20180501
  Transmission Date: 20180711
  Serious: Yes (Other)
  Sender: FDA-Public Use
  Company Number: US-ROCHE-1931665

PATIENT
  Age: 50 Year
  Sex: Female

DRUGS (6)
  1. OXALIPLATIN. [Concomitant]
     Active Substance: OXALIPLATIN
     Indication: COLORECTAL CANCER METASTATIC
     Route: 065
  2. LEUCOVORIN. [Concomitant]
     Active Substance: LEUCOVORIN
     Indication: COLORECTAL CANCER METASTATIC
     Route: 065
  3. BEVACIZUMAB. [Suspect]
     Active Substance: BEVACIZUMAB
     Indication: COLORECTAL CANCER METASTATIC
     Route: 065
  4. FLUOROURACIL. [Concomitant]
     Active Substance: FLUOROURACIL
     Indication: COLORECTAL CANCER METASTATIC
     Route: 065
  5. IRINOTECAN [Concomitant]
     Active Substance: IRINOTECAN
     Indication: COLORECTAL CANCER METASTATIC
     Route: 065
  6. ZOLEDRONIC ACID [Concomitant]
     Active Substance: ZOLEDRONIC ACID

REACTIONS (2)
  - Epistaxis [Unknown]
  - Rectal haemorrhage [Unknown]
